FAERS Safety Report 20804350 (Version 2)
Quarter: 2022Q3

REPORT INFORMATION
  Report Type: Spontaneous
  Country: HR (occurrence: HR)
  Receive Date: 20220509
  Receipt Date: 20220713
  Transmission Date: 20221027
  Serious: Yes (Other)
  Sender: FDA-Public Use
  Company Number: HR-GLAXOSMITHKLINE-HR2022GSK074770

PATIENT

DRUGS (1)
  1. ALBUTEROL [Suspect]
     Active Substance: ALBUTEROL
     Indication: Product used for unknown indication
     Dosage: UNK(10 ML INHALATION VIAL)
     Route: 048
     Dates: start: 20220328, end: 20220328

REACTIONS (5)
  - Accidental overdose [Unknown]
  - Tachycardia [Unknown]
  - Incorrect route of product administration [Unknown]
  - Hypokalaemia [Unknown]
  - Accidental exposure to product by child [Unknown]

NARRATIVE: CASE EVENT DATE: 20220328
